FAERS Safety Report 5129261-0 (Version None)
Quarter: 2006Q4

REPORT INFORMATION
  Report Type: 
  Country: None (occurrence: None)
  Receive Date: 20061011
  Receipt Date: 20060926
  Transmission Date: 20070319
  Serious: Yes (Disabling)
  Sender: FDA-Public Use
  Company Number: 2006-148501-NL

PATIENT
  Age: 38 Year
  Sex: Male

DRUGS (2)
  1. MIRTAZAPINE [Suspect]
     Indication: SLEEP DISORDER
     Dosage: 7.5 MG ORAL
     Route: 048
     Dates: start: 20060807, end: 20060830
  2. ESCITALOPRAM [Suspect]
     Indication: DEPRESSED MOOD
     Dosage: 10 MG ORAL
     Route: 048
     Dates: start: 20060807, end: 20060830

REACTIONS (2)
  - ERECTILE DYSFUNCTION [None]
  - LIBIDO DECREASED [None]
